FAERS Safety Report 10217101 (Version 2)
Quarter: 2014Q2

REPORT INFORMATION
  Report Type: Spontaneous
  Country: US (occurrence: US)
  Receive Date: 20140604
  Receipt Date: 20140611
  Transmission Date: 20141212
  Serious: Yes (Death, Hospitalization)
  Sender: FDA-Public Use
  Company Number: US-009507513-1406USA001195

PATIENT
  Age: 67 Year
  Sex: Male

DRUGS (1)
  1. TEMODAR [Suspect]
     Indication: METASTATIC MALIGNANT MELANOMA
     Dosage: 250 MG, DAILY
     Route: 048
     Dates: start: 20140106, end: 20140124

REACTIONS (3)
  - Disease progression [Fatal]
  - Pyrexia [Unknown]
  - Drug administration error [Unknown]
